FAERS Safety Report 6229668-4 (Version None)
Quarter: 2009Q2

REPORT INFORMATION
  Report Type: 
  Country: None (occurrence: None)
  Receive Date: 20090615
  Receipt Date: 20090610
  Transmission Date: 20091009
  Serious: Yes (Other)
  Sender: FDA-Public Use
  Company Number: B0578709A

PATIENT
  Sex: Female

DRUGS (1)
  1. HYCAMTIN [Suspect]
     Indication: OVARIAN CANCER
     Dosage: 4MG PER DAY
     Route: 065
     Dates: start: 20090101, end: 20090101

REACTIONS (2)
  - CARDIOTOXICITY [None]
  - DRUG INEFFECTIVE [None]
